FAERS Safety Report 6275287-3 (Version None)
Quarter: 2009Q3

REPORT INFORMATION
  Report Type: 
  Country: None (occurrence: None)
  Receive Date: 20090721
  Receipt Date: 20090713
  Transmission Date: 20100115
  Serious: Yes (Death, Hospitalization)
  Sender: FDA-Public Use
  Company Number: A0796672A

PATIENT
  Age: 67 Year
  Sex: Male

DRUGS (5)
  1. ADVAIR HFA [Suspect]
     Indication: CHRONIC OBSTRUCTIVE PULMONARY DISEASE
     Dosage: 1PUFF VARIABLE DOSE
     Route: 055
     Dates: start: 20000101, end: 20080924
  2. OTHER MEDICATIONS [Concomitant]
  3. WATER PILL [Concomitant]
  4. COMBIVENT [Concomitant]
  5. OXYGEN [Concomitant]

REACTIONS (2)
  - CHRONIC OBSTRUCTIVE PULMONARY DISEASE [None]
  - OVERDOSE [None]
